FAERS Safety Report 6901066-7 (Version None)
Quarter: 2010Q3

REPORT INFORMATION
  Report Type: 
  Country: None (occurrence: None)
  Receive Date: 20100716
  Receipt Date: 20100719
  Transmission Date: 20110219
  Serious: Yes (Death, Other)
  Sender: FDA-Public Use
  Company Number: AUR-APL-2010-01747

PATIENT
  Age: 65 Year
  Sex: Female

DRUGS (3)
  1. PAROXETINE [Suspect]
     Indication: ANXIETY
     Dosage: ORAL
     Route: 048
  2. CLOZARIL [Suspect]
     Indication: SCHIZOPHRENIA
     Dosage: ORAL
     Route: 048
     Dates: start: 19970312
  3. LEVOTHYROXINE SODIUM [Concomitant]

REACTIONS (1)
  - NON-SMALL CELL LUNG CANCER [None]
